FAERS Safety Report 11624616 (Version 3)
Quarter: 2015Q4

REPORT INFORMATION
  Report Type: Spontaneous
  Country: CZ (occurrence: CZ)
  Receive Date: 20151013
  Receipt Date: 20151023
  Transmission Date: 20160304
  Serious: Yes (Death, Hospitalization)
  Sender: FDA-Public Use
  Company Number: CZ-AMGEN-CZESP2015105929

PATIENT
  Age: 77 Year
  Sex: Male

DRUGS (19)
  1. ORGANIC NITRATES [Suspect]
     Active Substance: UNSPECIFIED INGREDIENT
     Indication: MYOCARDIAL ISCHAEMIA
     Dosage: UNK
     Route: 065
     Dates: end: 201508
  2. FURORESE                           /00032601/ [Concomitant]
     Dosage: 375 MG, QD (DAILY)
     Dates: end: 201509
  3. NOVOMIX [Concomitant]
     Active Substance: INSULIN ASPART
     Dosage: 40 UNIT, QD (DAILY)
     Route: 051
     Dates: end: 201509
  4. PROCORALAN [Suspect]
     Active Substance: IVABRADINE
     Indication: CARDIAC FAILURE CHRONIC
  5. MONOTAB [Suspect]
     Active Substance: ISOSORBIDE MONONITRATE
     Indication: PRODUCT USED FOR UNKNOWN INDICATION
     Dosage: 100 MG, QD
     Route: 065
     Dates: end: 201508
  6. PROCORALAN [Suspect]
     Active Substance: IVABRADINE
     Indication: MYOCARDIAL ISCHAEMIA
     Dosage: 5 MG, BID
     Route: 048
     Dates: start: 20150827, end: 20150907
  7. SORTIS [Concomitant]
     Active Substance: ATORVASTATIN
     Dosage: 20 MG, QD (DAILY)
     Dates: end: 201509
  8. ANOPYRIN [Concomitant]
     Active Substance: ASPIRIN
     Dosage: 100 MG, QD (DAILY)
     Dates: end: 201509
  9. AKTIFERRIN COMPOSITUM [Concomitant]
     Dosage: 2 DF, QD (DAILY)
     Dates: end: 201508
  10. PRESTARIUM NEO [Suspect]
     Active Substance: PERINDOPRIL ARGININE
     Indication: HYPERTENSION
     Dosage: 5 MG, QD (DAILY)
     Route: 048
     Dates: start: 201403, end: 201508
  11. JANUVIA [Concomitant]
     Active Substance: SITAGLIPTIN PHOSPHATE
     Dosage: 100 MG, QD (DAILY)
     Dates: end: 201509
  12. ITOPRID PMCS [Concomitant]
     Dosage: 150 MG, QD (DAILY)
     Dates: end: 201509
  13. PRESTARIUM NEO [Suspect]
     Active Substance: PERINDOPRIL ARGININE
     Dosage: 2.5 MG, QD
     Route: 048
     Dates: start: 20150827, end: 201509
  14. CONCOR [Suspect]
     Active Substance: BISOPROLOL FUMARATE
     Indication: CARDIAC FAILURE
     Dosage: 2.5 MG, QD
     Route: 048
     Dates: start: 201509, end: 201509
  15. LANZUL [Concomitant]
     Active Substance: LANSOPRAZOLE
     Dosage: 15 MG, QD (DAILY)
     Dates: end: 201508
  16. CONCOR [Suspect]
     Active Substance: BISOPROLOL FUMARATE
     Indication: MYOCARDIAL ISCHAEMIA
     Dosage: 2.5 MG, QD
     Route: 048
     Dates: end: 20150907
  17. OMNIC [Suspect]
     Active Substance: TAMSULOSIN HYDROCHLORIDE
     Indication: PRODUCT USED FOR UNKNOWN INDICATION
     Dosage: 0.4 MG, QD
     Route: 048
     Dates: end: 201508
  18. PREDUCTAL MV [Concomitant]
     Dosage: 70 MG, QD (DAILY)
     Route: 065
     Dates: end: 201509
  19. URIZIA [Concomitant]
     Dosage: 1 DF, QD (DAILY) 6 MGL 0.4 MG
     Dates: end: 201509

REACTIONS (13)
  - Hyperglycaemia [Unknown]
  - Cardiac arrest [Fatal]
  - Atrioventricular block first degree [Unknown]
  - Blood creatinine increased [Unknown]
  - Cardiac failure [Unknown]
  - Hypotension [Recovered/Resolved]
  - Bradycardia [Unknown]
  - Extrasystoles [Unknown]
  - Hypokalaemia [Unknown]
  - Hyponatraemia [Recovered/Resolved]
  - Bundle branch block left [Unknown]
  - Bundle branch block right [Unknown]
  - Loss of consciousness [Unknown]

NARRATIVE: CASE EVENT DATE: 20150809
